FAERS Safety Report 17931030 (Version 2)
Quarter: 2020Q3

REPORT INFORMATION
  Report Type: Report from Study
  Country: CO (occurrence: CO)
  Receive Date: 20200623
  Receipt Date: 20200725
  Transmission Date: 20201103
  Serious: Yes (Death, Hospitalization)
  Sender: FDA-Public Use
  Company Number: NVSC2020CO173718

PATIENT
  Sex: Female

DRUGS (2)
  1. KISQALI [Suspect]
     Active Substance: RIBOCICLIB
     Indication: BREAST CANCER METASTATIC
     Dosage: UNK
     Route: 048
  2. FEMARA [Suspect]
     Active Substance: LETROZOLE
     Indication: BREAST CANCER
     Dosage: UNK
     Route: 048

REACTIONS (3)
  - Death [Fatal]
  - Pneumonia [Unknown]
  - Pleural effusion [Unknown]
